FAERS Safety Report 12686685 (Version 1)
Quarter: 2016Q3

REPORT INFORMATION
  Report Type: Spontaneous
  Country: AU (occurrence: AU)
  Receive Date: 20160825
  Receipt Date: 20160825
  Transmission Date: 20161109
  Serious: Yes (Congenital Anomaly, Other)
  Sender: FDA-Public Use
  Company Number: AU-ELI_LILLY_AND_COMPANY-AU201608009679

PATIENT
  Age: 0 Day

DRUGS (1)
  1. CYMBALTA [Suspect]
     Active Substance: DULOXETINE HYDROCHLORIDE
     Indication: PRODUCT USED FOR UNKNOWN INDICATION
     Dosage: 60 MG, QD
     Route: 064

REACTIONS (6)
  - Premature baby [Unknown]
  - Gross motor delay [Not Recovered/Not Resolved]
  - Foetal exposure during pregnancy [Recovered/Resolved]
  - Speech disorder developmental [Not Recovered/Not Resolved]
  - Hypotonia [Not Recovered/Not Resolved]
  - Developmental delay [Not Recovered/Not Resolved]

NARRATIVE: CASE EVENT DATE: 20111116
